FAERS Safety Report 5711348-2 (Version None)
Quarter: 2008Q2

REPORT INFORMATION
  Report Type: 
  Country: None (occurrence: None)
  Receive Date: 20080421
  Receipt Date: 20080408
  Transmission Date: 20081010
  Serious: Yes (Hospitalization, Disabling)
  Sender: FDA-Public Use
  Company Number: B0500026A

PATIENT
  Age: 71 Year
  Sex: Male

DRUGS (3)
  1. ZOPHREN [Suspect]
     Route: 042
     Dates: start: 20070130, end: 20070801
  2. TAXOTERE [Suspect]
     Indication: PROSTATE CANCER
     Route: 042
     Dates: start: 20070130, end: 20070515
  3. NAVELBINE [Suspect]
     Indication: PROSTATE CANCER
     Route: 042
     Dates: start: 20070706, end: 20070801

REACTIONS (10)
  - AMYOTROPHY [None]
  - ATAXIA [None]
  - EXTENSOR PLANTAR RESPONSE [None]
  - FALL [None]
  - HYPOREFLEXIA [None]
  - MUSCULAR WEAKNESS [None]
  - NEUROPATHY PERIPHERAL [None]
  - PARAESTHESIA [None]
  - QUADRIPARESIS [None]
  - SENSORY DISTURBANCE [None]
